FAERS Safety Report 20419397 (Version 1)
Quarter: 2022Q1

REPORT INFORMATION
  Report Type: Spontaneous
  Country: US (occurrence: US)
  Receive Date: 20220203
  Receipt Date: 20220203
  Transmission Date: 20220423
  Serious: No
  Sender: FDA-Public Use
  Company Number: US-APOTEX-2022AP002065

PATIENT
  Age: 56 Year
  Sex: Male

DRUGS (4)
  1. APO-VARENICLINE [Suspect]
     Active Substance: VARENICLINE TARTRATE
     Indication: Smoking cessation therapy
     Dosage: UNK (HALF TABLET FOR FIRST THREE DAYS)
     Route: 048
     Dates: start: 20211228, end: 20211231
  2. APO-VARENICLINE [Suspect]
     Active Substance: VARENICLINE TARTRATE
     Dosage: UNK (THEN 1 TABLET THEREAFTER)
     Route: 048
  3. GABAPENTIN [Concomitant]
     Active Substance: GABAPENTIN
     Indication: Sleep disorder
     Dosage: 1 DOSAGE FORM, Q.H.S. (1 PILL AT NIGHT))
     Route: 048
  4. PREVAGEN [APOAEQUORIN;COLECALCIFEROL] [Concomitant]
     Indication: Product used for unknown indication
     Dosage: 1 DOSAGE FORM, QD (1 CAPSULE IN THE MORNING)
     Route: 048

REACTIONS (2)
  - Erythema [Recovering/Resolving]
  - Condition aggravated [Recovering/Resolving]

NARRATIVE: CASE EVENT DATE: 20220101
